FAERS Safety Report 6798369-6 (Version None)
Quarter: 2010Q2

REPORT INFORMATION
  Report Type: 
  Country: None (occurrence: None)
  Receive Date: 20100622
  Receipt Date: 20100610
  Transmission Date: 20101027
  Serious: Yes (Death)
  Sender: FDA-Public Use
  Company Number: KV200900740

PATIENT
  Age: 66 Year
  Sex: Male
  Weight: 102.5 kg

DRUGS (19)
  1. MORPHINE SULFATE [Suspect]
     Indication: BACK PAIN
     Dosage: 15 MG, TID, ORAL
     Route: 048
     Dates: start: 20080904, end: 20080905
  2. HYDROCODONE BITARTRATE AND ACETAMINOPHEN (HYDROCODONE BITARTRATE, PARA [Concomitant]
  3. LISINOPRIL [Concomitant]
  4. HYDROCHLOROTHIAZIDE [Concomitant]
  5. IBUPROFEN [Concomitant]
  6. TAZTIA XT (DILTIAZEM HYDROCHLORIDE) [Concomitant]
  7. OS-CAL /00108001/ (CALCIUM CARBONATE) [Concomitant]
  8. FISH OIL (FISH OIL) [Concomitant]
  9. MULTIVITAMIN /00831701/ (VITAMINS NOS) [Concomitant]
  10. MAGNESIUM OXIDE (MAGNESIUM OXIDE) [Concomitant]
  11. MANGANESE (MANGANESE) [Concomitant]
  12. GLUCOSAMINE (GLUCOSAMINE) [Concomitant]
  13. POTASSIUM CHLORIDE [Concomitant]
  14. B COMPLEX /00212701/ (NICOTINAMIDE, PYRIDOXINE HYDROCHLORIDE, RIBOFLAV [Concomitant]
  15. ERGOCALCIFEROL [Concomitant]
  16. VITAMIN B-12 [Concomitant]
  17. SAW PALMETTO /00833501/ (SERENOA REPENS) [Concomitant]
  18. VITAMIN B6 [Concomitant]
  19. VIAGRA	/01367501/ (SILDENAFIL) [Concomitant]

REACTIONS (3)
  - ACCIDENTAL DEATH [None]
  - ALCOHOL POISONING [None]
  - DRUG TOXICITY [None]
